FAERS Safety Report 7561555-1 (Version None)
Quarter: 2011Q2

REPORT INFORMATION
  Report Type: 
  Country: None (occurrence: None)
  Receive Date: 20110621
  Receipt Date: 20100927
  Transmission Date: 20111010
  Serious: No
  Sender: FDA-Public Use
  Company Number: US-ASTRAZENECA-2010SE41311

PATIENT
  Sex: Female

DRUGS (2)
  1. PULMICORT [Suspect]
     Dosage: 1 MG BID
     Route: 055
     Dates: start: 20100801
  2. PULMICORT [Suspect]
     Indication: ASTHMA
     Dosage: 180 MCG 2 PUFFS BID
     Route: 055
     Dates: start: 20100701, end: 20100801

REACTIONS (2)
  - HYPERSENSITIVITY [None]
  - DYSPNOEA [None]
